FAERS Safety Report 9448774 (Version 2)
Quarter: 2014Q1

REPORT INFORMATION
  Report Type: Report from Study
  Country: BR (occurrence: BR)
  Receive Date: 20130808
  Receipt Date: 20140120
  Transmission Date: 20141002
  Serious: Yes (Hospitalization, Other)
  Sender: FDA-Public Use
  Company Number: PHHY2013BR085382

PATIENT
  Sex: Female
  Weight: 50 kg

DRUGS (3)
  1. ACLASTA [Suspect]
     Indication: OSTEOPOROSIS
     Dosage: 5 MG, UNK
     Route: 042
     Dates: start: 2010
  2. CALCIUM [Concomitant]
     Dosage: UNK UKN, UNK
     Dates: start: 2008
  3. VITAMIN D [Concomitant]
     Dosage: UNK UKN, UNK
     Dates: start: 2010

REACTIONS (2)
  - Fracture [Recovering/Resolving]
  - Pain [Unknown]
